FAERS Safety Report 18507395 (Version 1)
Quarter: 2020Q4

REPORT INFORMATION
  Report Type: Spontaneous
  Country: US (occurrence: US)
  Receive Date: 20201116
  Receipt Date: 20201116
  Transmission Date: 20210114
  Serious: Yes (Hospitalization, Other)
  Sender: FDA-Public Use
  Company Number: None

PATIENT
  Age: 77 Year
  Sex: Female
  Weight: 80.2 kg

DRUGS (4)
  1. VANCOMYCIN [Suspect]
     Active Substance: VANCOMYCIN
     Indication: STAPHYLOCOCCUS TEST POSITIVE
     Route: 042
     Dates: start: 20201021, end: 20201103
  2. RIFAMPIN. [Concomitant]
     Active Substance: RIFAMPIN
     Dates: start: 20201021
  3. CELEBREX [Concomitant]
     Active Substance: CELECOXIB
     Dates: start: 20160606
  4. VANCOMYCIN [Suspect]
     Active Substance: VANCOMYCIN
     Indication: HIP ARTHROPLASTY
     Route: 042
     Dates: start: 20201021, end: 20201103

REACTIONS (3)
  - Drug level increased [None]
  - Acute kidney injury [None]
  - Blood creatinine increased [None]

NARRATIVE: CASE EVENT DATE: 20201102
